FAERS Safety Report 6829132-5 (Version None)
Quarter: 2010Q3

REPORT INFORMATION
  Report Type: 
  Country: None (occurrence: None)
  Receive Date: 20100709
  Receipt Date: 20070305
  Transmission Date: 20110219
  Serious: No
  Sender: FDA-Public Use
  Company Number: US-PFIZER INC-2007017570

PATIENT
  Sex: Female
  Weight: 83.91 kg

DRUGS (10)
  1. CHANTIX [Suspect]
     Indication: SMOKING CESSATION THERAPY
     Route: 048
     Dates: start: 20070224, end: 20070305
  2. PAROXETINE HCL [Concomitant]
     Indication: DEPRESSION
  3. CYCLOBENZAPRINE [Concomitant]
  4. MUCINEX [Concomitant]
  5. GLIPIZIDE [Concomitant]
  6. HYDROXYZINE [Concomitant]
  7. ALBUTEROL [Concomitant]
  8. ADVAIR DISKUS 100/50 [Concomitant]
     Route: 055
  9. SPIRIVA [Concomitant]
  10. XOPENEX [Concomitant]

REACTIONS (1)
  - CRYING [None]
